FAERS Safety Report 11411039 (Version 1)
Quarter: 2015Q3

REPORT INFORMATION
  Report Type: Spontaneous
  Country: US (occurrence: US)
  Receive Date: 20150821
  Receipt Date: 20150821
  Transmission Date: 20151125
  Serious: No
  Sender: FDA-Public Use
  Company Number: US-ELI_LILLY_AND_COMPANY-US201003000923

PATIENT
  Age: 48 Year
  Sex: Female

DRUGS (5)
  1. HUMULIN N [Suspect]
     Active Substance: INSULIN HUMAN
     Dosage: 42 U, EACH MORNING
     Dates: start: 200912
  2. NOVOLOG [Concomitant]
     Active Substance: INSULIN ASPART
     Dosage: UNK, AS NEEDED
  3. HUMULIN N [Suspect]
     Active Substance: INSULIN HUMAN
     Dosage: 42 U, EACH MORNING
  4. HUMULIN N [Suspect]
     Active Substance: INSULIN HUMAN
     Dosage: 34 U, EACH EVENING
  5. HUMULIN N [Suspect]
     Active Substance: INSULIN HUMAN
     Dosage: 34 U, EACH EVENING

REACTIONS (7)
  - Gait disturbance [Unknown]
  - Injection site mass [Unknown]
  - Hypersensitivity [Unknown]
  - Injection site erythema [Unknown]
  - Injection site warmth [Unknown]
  - Pain [Unknown]
  - Dizziness [Unknown]

NARRATIVE: CASE EVENT DATE: 200912
